FAERS Safety Report 17518783 (Version 1)
Quarter: 2020Q1

REPORT INFORMATION
  Report Type: Report from Study
  Country: US (occurrence: US)
  Receive Date: 20200310
  Receipt Date: 20200310
  Transmission Date: 20200409
  Serious: Yes (Other)
  Sender: FDA-Public Use
  Company Number: US-ROCHE-2231016

PATIENT
  Age: 61 Year
  Sex: Female
  Weight: 63.56 kg

DRUGS (19)
  1. LISINOPRIL. [Concomitant]
     Active Substance: LISINOPRIL
     Indication: BLOOD PRESSURE MEASUREMENT
     Dosage: ONGOING YES
     Route: 065
  2. OCREVUS [Suspect]
     Active Substance: OCRELIZUMAB
     Indication: PROGRESSIVE MULTIPLE SCLEROSIS
     Dosage: ONGOING YES
     Route: 065
     Dates: start: 20190110
  3. PHENERGAN [Concomitant]
     Active Substance: PROMETHAZINE HYDROCHLORIDE
     Indication: NAUSEA
     Dosage: PRN NAUSEA EVERY 4 HOURS ;ONGOING: YES
     Route: 065
  4. REQUIP [Concomitant]
     Active Substance: ROPINIROLE HYDROCHLORIDE
     Indication: RESTLESS LEGS SYNDROME
     Dosage: ONGOING YES;EVENING AND BEDTIME
     Route: 065
  5. PLAVIX [Concomitant]
     Active Substance: CLOPIDOGREL BISULFATE
     Indication: CORONARY ARTERIAL STENT INSERTION
  6. OCREVUS [Suspect]
     Active Substance: OCRELIZUMAB
     Dosage: 300 MAY DAY 1 AND DAY 15,?600 MG ONCE IN 6 MONTHS
     Route: 042
     Dates: start: 20181222
  7. KLONOPIN [Suspect]
     Active Substance: CLONAZEPAM
     Indication: RESTLESS LEGS SYNDROME
     Dosage: BEFORE BEDTIME AS NEEDED OR TWICE A DAY ;ONGOING: YES
     Route: 065
     Dates: start: 2017
  8. KLONOPIN [Suspect]
     Active Substance: CLONAZEPAM
     Indication: PANIC ATTACK
     Dosage: INITIAL DOSE ;ONGOING: NO
     Route: 065
  9. PEPCID [Concomitant]
     Active Substance: FAMOTIDINE
     Dosage: NIGHT ;ONGOING: YES
     Route: 065
  10. NORVASC [Concomitant]
     Active Substance: AMLODIPINE BESYLATE
     Indication: BLOOD PRESSURE MEASUREMENT
     Dosage: ONGOING YES
     Route: 065
  11. KLONOPIN [Suspect]
     Active Substance: CLONAZEPAM
     Indication: ANXIETY
  12. ASPIRIN [ACETYLSALICYLIC ACID] [Concomitant]
     Active Substance: ASPIRIN
     Indication: ATRIOVENTRICULAR BLOCK
     Dosage: THREE BLOCKAGES AND THREE STENTS;ONGOING YES
     Route: 065
  13. PROZAC [Concomitant]
     Active Substance: FLUOXETINE HYDROCHLORIDE
     Indication: DEPRESSION
     Dosage: YES
     Route: 065
  14. ASPIRIN [ACETYLSALICYLIC ACID] [Concomitant]
     Active Substance: ASPIRIN
     Indication: CORONARY ARTERIAL STENT INSERTION
  15. ADDERALL [Concomitant]
     Active Substance: AMPHETAMINE ASPARTATE\AMPHETAMINE SULFATE\DEXTROAMPHETAMINE SACCHARATE\DEXTROAMPHETAMINE SULFATE
     Dosage: YES
     Route: 065
  16. PLAVIX [Concomitant]
     Active Substance: CLOPIDOGREL BISULFATE
     Indication: ATRIOVENTRICULAR BLOCK
     Dosage: ONGOING YES
     Route: 065
  17. OCREVUS [Suspect]
     Active Substance: OCRELIZUMAB
     Indication: RELAPSING MULTIPLE SCLEROSIS
     Dosage: ONGOING YES
     Route: 065
     Dates: start: 20181211
  18. PRILOSEC [Concomitant]
     Active Substance: OMEPRAZOLE MAGNESIUM
     Dosage: MORNING ;ONGOING: YES
     Route: 065
  19. PREDNISONE. [Concomitant]
     Active Substance: PREDNISONE
     Dosage: TAPER DOWN ; ONGOING : YES
     Route: 065

REACTIONS (33)
  - Pulmonary mass [Not Recovered/Not Resolved]
  - Chest pain [Recovered/Resolved]
  - Restless legs syndrome [Not Recovered/Not Resolved]
  - Nerve injury [Unknown]
  - Hiatus hernia [Unknown]
  - Anxiety [Unknown]
  - Amnesia [Unknown]
  - Fear [Unknown]
  - Blood pressure fluctuation [Recovered/Resolved]
  - Hypertension [Not Recovered/Not Resolved]
  - Pain [Recovered/Resolved]
  - Malaise [Not Recovered/Not Resolved]
  - Feeling abnormal [Unknown]
  - Speech disorder [Unknown]
  - Neuropathy peripheral [Not Recovered/Not Resolved]
  - Chest discomfort [Recovered/Resolved]
  - Depression [Unknown]
  - Underdose [Unknown]
  - Nausea [Not Recovered/Not Resolved]
  - Arthralgia [Not Recovered/Not Resolved]
  - Coronary arterial stent insertion [Unknown]
  - Dyskinesia [Not Recovered/Not Resolved]
  - Headache [Recovered/Resolved]
  - Joint stiffness [Not Recovered/Not Resolved]
  - Pneumonia [Not Recovered/Not Resolved]
  - Insomnia [Not Recovered/Not Resolved]
  - Blood pressure increased [Not Recovered/Not Resolved]
  - Multiple sclerosis [Not Recovered/Not Resolved]
  - Atrioventricular block [Unknown]
  - Pain in extremity [Recovering/Resolving]
  - Panic reaction [Unknown]
  - Balance disorder [Unknown]
  - Gait disturbance [Not Recovered/Not Resolved]

NARRATIVE: CASE EVENT DATE: 2018
